FAERS Safety Report 5500764-X (Version None)
Quarter: 2007Q4

REPORT INFORMATION
  Report Type: 
  Country: None (occurrence: None)
  Receive Date: 20071029
  Receipt Date: 20071025
  Transmission Date: 20080405
  Serious: Yes (Hospitalization, Other)
  Sender: FDA-Public Use
  Company Number: JP-BRISTOL-MYERS SQUIBB COMPANY-13950092

PATIENT
  Age: 55 Year
  Sex: Female

DRUGS (4)
  1. TAXOL [Suspect]
     Indication: OVARIAN CANCER
     Dosage: 22 CYCLES OF TREATMENT(10 TAXOL+PARAPLATIN COMBINATION THERAPY) AND 12 CYCLES OF TAXOL MONOTHERAPY.
     Route: 041
     Dates: start: 20051018, end: 20070511
  2. PARAPLATIN [Suspect]
     Indication: OVARIAN CANCER
     Route: 041
     Dates: start: 20051018, end: 20060602
  3. ORGADRONE [Concomitant]
     Route: 042
     Dates: start: 20051018, end: 20070511
  4. FAMOTIDINE [Concomitant]
     Route: 041
     Dates: start: 20051018, end: 20070511

REACTIONS (1)
  - MYELODYSPLASTIC SYNDROME [None]
